FAERS Safety Report 20613550 (Version 4)
Quarter: 2022Q2

REPORT INFORMATION
  Report Type: Spontaneous
  Country: US (occurrence: US)
  Receive Date: 20220319
  Receipt Date: 20220520
  Transmission Date: 20220720
  Serious: Yes (Other)
  Sender: FDA-Public Use
  Company Number: US-CELLTRION INC.-2022US003035

PATIENT

DRUGS (1)
  1. TRUXIMA [Suspect]
     Active Substance: RITUXIMAB-ABBS
     Indication: Product used for unknown indication
     Dosage: DAY 0, DAY 14, AND THEN EVERY MONTH
     Dates: start: 20220208

REACTIONS (4)
  - Chest discomfort [Unknown]
  - Urticaria [Unknown]
  - Anxiety [Unknown]
  - Product quality issue [Unknown]
